FAERS Safety Report 17448689 (Version 2)
Quarter: 2020Q1

REPORT INFORMATION
  Report Type: Report from Study
  Country: None (occurrence: US)
  Receive Date: 20200224
  Receipt Date: 20200318
  Transmission Date: 20200409
  Serious: Yes (Hospitalization, Other)
  Sender: FDA-Public Use
  Company Number: US-ABBVIE-20K-163-3288291-00

PATIENT
  Sex: Male

DRUGS (3)
  1. HUMIRA [Suspect]
     Active Substance: ADALIMUMAB
     Indication: CROHN^S DISEASE
     Dosage: DAY 15
     Route: 058
     Dates: start: 20200116, end: 20200116
  2. HUMIRA [Suspect]
     Active Substance: ADALIMUMAB
     Dosage: DAY 29
     Route: 058
     Dates: start: 20200130
  3. HUMIRA [Suspect]
     Active Substance: ADALIMUMAB
     Indication: CROHN^S DISEASE
     Dosage: DAY 1
     Route: 058
     Dates: start: 20200102, end: 20200102

REACTIONS (11)
  - Diabetes mellitus [Unknown]
  - Muscle atrophy [Unknown]
  - Gait disturbance [Unknown]
  - Peripheral swelling [Recovered/Resolved]
  - Poor quality sleep [Unknown]
  - Atrial fibrillation [Unknown]
  - Infection [Unknown]
  - Ileostomy [Unknown]
  - Stoma site haemorrhage [Unknown]
  - Loss of personal independence in daily activities [Unknown]
  - Crohn^s disease [Unknown]

NARRATIVE: CASE EVENT DATE: 2020
